FAERS Safety Report 12328755 (Version 1)
Quarter: 2016Q2

REPORT INFORMATION
  Report Type: Spontaneous
  Country: US (occurrence: US)
  Receive Date: 20160503
  Receipt Date: 20160503
  Transmission Date: 20160815
  Serious: No
  Sender: FDA-Public Use
  Company Number: US-BEH-2015050567

PATIENT
  Sex: Female
  Weight: 81 kg

DRUGS (11)
  1. SYNTHROID [Concomitant]
     Active Substance: LEVOTHYROXINE SODIUM
     Dosage: 1 TAB QD
     Route: 048
  2. EPIPEN [Concomitant]
     Active Substance: EPINEPHRINE
     Indication: ANAPHYLACTIC REACTION
     Dosage: 0.3 MG PRN
     Route: 030
  3. VITAMIN D 400 UN/ML [Concomitant]
  4. HIZENTRA [Suspect]
     Active Substance: HUMAN IMMUNOGLOBULIN G
     Indication: IMMUNODEFICIENCY COMMON VARIABLE
     Route: 058
  5. TRICOR 48 MG [Concomitant]
     Dosage: 1 DOSE QD
     Route: 048
  6. CALCIUM 600 MG [Concomitant]
     Dosage: 1 DOSE QD
     Route: 048
  7. DEPO-ESTRADIOL 5 MG/ML [Concomitant]
     Dosage: 1 INJ Q21D
  8. FISH OIL 1000MG [Concomitant]
     Dosage: 1 DOSE QD
     Route: 048
  9. DIPHENHYDRAMINE. [Concomitant]
     Active Substance: DIPHENHYDRAMINE
     Indication: ANAPHYLACTIC REACTION
     Dosage: 25 MG PRN
     Route: 048
  10. ZOLOFT 100 MG [Concomitant]
     Dosage: 1 TAB QD
     Route: 048
  11. MULTIVITAMIN [Concomitant]
     Active Substance: VITAMINS
     Dosage: 1 TAB QD
     Route: 048

REACTIONS (3)
  - Fatigue [Unknown]
  - Arthralgia [Unknown]
  - Alopecia [Unknown]
